FAERS Safety Report 8905241 (Version 1)
Quarter: 2012Q4

REPORT INFORMATION
  Report Type: 
  Country: CA (occurrence: CA)
  Receive Date: 20121111
  Receipt Date: 20121111
  Transmission Date: 20130627
  Serious: Yes (Other)
  Sender: FDA-Public Use
  Company Number: PHMT2006CA02064

PATIENT
  Sex: Female

DRUGS (11)
  1. SANDOSTATIN LAR [Suspect]
     Indication: CARCINOID TUMOUR
     Dosage: 30 mg, every 4 weeks
     Dates: start: 20040805
  2. SANDOSTATIN LAR [Suspect]
     Dosage: 40 mg, UNK
  3. ASA [Concomitant]
  4. ATIVAN [Concomitant]
  5. FERROUS GLUCONATE [Concomitant]
  6. HYDROCHLOROTHIAZIDE [Concomitant]
  7. IMODIUM [Concomitant]
     Dosage: 1 DF, BID
  8. LOSEC [Concomitant]
  9. PAXIL [Concomitant]
  10. SIMVASTATIN [Concomitant]
  11. SYNTHROID [Concomitant]

REACTIONS (22)
  - Hypoacusis [Unknown]
  - Gait disturbance [Unknown]
  - Fall [Unknown]
  - Diarrhoea [Not Recovered/Not Resolved]
  - Abdominal pain [Unknown]
  - Dizziness postural [Unknown]
  - Arthralgia [Unknown]
  - Joint injury [Unknown]
  - Contusion [Unknown]
  - Nausea [Unknown]
  - Hypertension [Unknown]
  - Dizziness [Unknown]
  - Hyperhidrosis [Unknown]
  - Defaecation urgency [Unknown]
  - Vomiting [Unknown]
  - Blood glucose increased [Unknown]
  - Abdominal discomfort [Unknown]
  - Urinary tract infection [Unknown]
  - Weight decreased [Unknown]
  - Cystitis [Unknown]
  - Abdominal distension [Unknown]
  - Fatigue [Unknown]
